FAERS Safety Report 5759672-1 (Version None)
Quarter: 2008Q2

REPORT INFORMATION
  Report Type: 
  Country: None (occurrence: None)
  Receive Date: 20080605
  Receipt Date: 20080529
  Transmission Date: 20081010
  Serious: Yes (Other)
  Sender: FDA-Public Use
  Company Number: JP-ABBOTT-08P-087-0454097-00

PATIENT
  Age: 33 Year
  Sex: Male

DRUGS (6)
  1. CLARITH TABLETS [Suspect]
     Indication: BRONCHITIS
     Route: 048
     Dates: start: 20080328, end: 20080404
  2. AMBROXOL HYDROCHLORIDE [Concomitant]
     Indication: UPPER RESPIRATORY TRACT INFLAMMATION
     Route: 048
     Dates: start: 20080328, end: 20080409
  3. PL [Concomitant]
     Indication: UPPER RESPIRATORY TRACT INFLAMMATION
     Route: 048
     Dates: start: 20080328, end: 20080409
  4. CODEINE PHOSPHATE HYDRATE [Concomitant]
     Indication: UPPER RESPIRATORY TRACT INFLAMMATION
     Route: 048
     Dates: start: 20080328, end: 20080409
  5. HUSCODE (MIXED WITH AMBROXOL HYDROCHLORIDE) [Concomitant]
     Indication: UPPER RESPIRATORY TRACT INFLAMMATION
     Route: 048
     Dates: start: 20080328, end: 20080409
  6. AMBROXOL HYDROCHLORIDE (MIXED WITH HUSCODE) [Concomitant]
     Indication: UPPER RESPIRATORY TRACT INFLAMMATION
     Route: 048
     Dates: start: 20080328, end: 20080409

REACTIONS (5)
  - CHEST DISCOMFORT [None]
  - COUGH [None]
  - PNEUMONIA MYCOPLASMAL [None]
  - RHABDOMYOLYSIS [None]
  - TONSILLAR HYPERTROPHY [None]
